FAERS Safety Report 7938865-9 (Version None)
Quarter: 2011Q4

REPORT INFORMATION
  Report Type: 
  Country: None (occurrence: None)
  Receive Date: 20111124
  Receipt Date: 20111114
  Transmission Date: 20120403
  Serious: Yes (Other)
  Sender: FDA-Public Use
  Company Number: US-BRISTOL-MYERS SQUIBB COMPANY-16230583

PATIENT
  Age: 33 Year
  Sex: Female

DRUGS (1)
  1. TAXOL [Suspect]
     Indication: BREAST CANCER
     Dosage: LAST DOSE:2001
     Dates: start: 19990101

REACTIONS (3)
  - COGNITIVE DISORDER [None]
  - BONE PAIN [None]
  - ANXIETY [None]
